FAERS Safety Report 15198220 (Version 1)
Quarter: 2018Q3

REPORT INFORMATION
  Report Type: Report from Study
  Country: ES (occurrence: ES)
  Receive Date: 20180725
  Receipt Date: 20180725
  Transmission Date: 20181010
  Serious: Yes (Other)
  Sender: FDA-Public Use
  Company Number: ES-MYLANLABS-2018M1053959

PATIENT
  Age: 36 Year
  Sex: Female

DRUGS (4)
  1. CAPTOPRIL. [Suspect]
     Active Substance: CAPTOPRIL
     Indication: HYPERTENSION
     Dosage: 25 MG, UNK
     Route: 060
  2. CAPTOPRIL. [Suspect]
     Active Substance: CAPTOPRIL
     Dosage: 25 MG, UNK
     Route: 048
  3. CICLOSPORIN [Interacting]
     Active Substance: CYCLOSPORINE
     Indication: PSORIASIS
     Dosage: 400 MG, UNK
     Route: 048
  4. LEVOTHYROXINE. [Concomitant]
     Active Substance: LEVOTHYROXINE
     Indication: PRODUCT USED FOR UNKNOWN INDICATION
     Dosage: 125 MG, QD
     Route: 065

REACTIONS (8)
  - Drug interaction [Unknown]
  - Tachycardia [Not Recovered/Not Resolved]
  - Arthralgia [Unknown]
  - Hair growth abnormal [Unknown]
  - Blood pressure increased [Recovered/Resolved]
  - Alopecia [Unknown]
  - Fatigue [Unknown]
  - Nasopharyngitis [Unknown]

NARRATIVE: CASE EVENT DATE: 20180323
